FAERS Safety Report 4596082-7 (Version None)
Quarter: 2005Q1

REPORT INFORMATION
  Report Type: 
  Country: None (occurrence: None)
  Receive Date: 20050225
  Receipt Date: 20050221
  Transmission Date: 20050727
  Serious: Yes (Life-Threatening, Hospitalization)
  Sender: FDA-Public Use
  Company Number: 2005-125382-NL

PATIENT
  Age: 53 Year
  Sex: Female

DRUGS (4)
  1. MIRTAZAPINE [Suspect]
     Indication: DEPRESSION
     Dosage: 30 MG QD ORAL
     Route: 048
     Dates: start: 20041101, end: 20050128
  2. METHOTREXATE [Concomitant]
  3. FOLIC ACID [Concomitant]
  4. FLUCLOXACILLIN [Concomitant]

REACTIONS (2)
  - DISEASE RECURRENCE [None]
  - PSORIASIS [None]
